FAERS Safety Report 8973640 (Version 1)
Quarter: 2012Q4

REPORT INFORMATION
  Report Type: 
  Country: US (occurrence: US)
  Receive Date: 20121218
  Receipt Date: 20121218
  Transmission Date: 20130627
  Serious: Yes (Other)
  Sender: FDA-Public Use
  Company Number: US-BRISTOL-MYERS SQUIBB COMPANY-16903767

PATIENT
  Age: 25 Year
  Sex: Male

DRUGS (4)
  1. ABILIFY [Suspect]
     Indication: ANXIETY
     Dosage: Started as 20mg then increased to 30mg
On 8Aug2012 dose increased to 15mg
     Dates: start: 20120718
  2. LORAZEPAM [Suspect]
  3. DEPAKOTE [Concomitant]
     Dates: start: 20120824
  4. KLONOPIN [Concomitant]

REACTIONS (3)
  - Convulsion [Recovering/Resolving]
  - Swollen tongue [Recovering/Resolving]
  - Lip swelling [Recovering/Resolving]
